FAERS Safety Report 6520417-9 (Version None)
Quarter: 2009Q4

REPORT INFORMATION
  Report Type: 
  Country: None (occurrence: None)
  Receive Date: 20091229
  Receipt Date: 20091223
  Transmission Date: 20100525
  Serious: Yes (Hospitalization)
  Sender: FDA-Public Use
  Company Number: NZ-BAYER-200943684GPV

PATIENT
  Age: 58 Year
  Sex: Male
  Weight: 120 kg

DRUGS (5)
  1. SORAFENIB [Suspect]
     Indication: HEPATIC NEOPLASM MALIGNANT
     Dosage: TOTAL DAILY DOSE: 800 MG
     Route: 048
     Dates: start: 20091202, end: 20091215
  2. ERLOTINIB OR PLACEBO [Suspect]
     Indication: HEPATIC NEOPLASM MALIGNANT
     Route: 048
     Dates: start: 20091202, end: 20091215
  3. FRUSEMIDE [Concomitant]
     Indication: OEDEMA
     Route: 048
     Dates: start: 20081106
  4. LAMIVUDINE [Concomitant]
     Indication: HEPATITIS B
     Route: 048
     Dates: start: 20081106
  5. COLOXYL WITH SENNA [Concomitant]
     Route: 048
     Dates: start: 20081220

REACTIONS (1)
  - OEDEMA PERIPHERAL [None]
